FAERS Safety Report 24971879 (Version 1)
Quarter: 2025Q1

REPORT INFORMATION
  Report Type: Spontaneous
  Country: DE (occurrence: DE)
  Receive Date: 20250214
  Receipt Date: 20250214
  Transmission Date: 20250409
  Serious: Yes (Death, Life-Threatening, Hospitalization)
  Sender: ABBVIE
  Company Number: None

PATIENT
  Age: 77 Year
  Sex: Female

DRUGS (1)
  1. ELAHERE [Suspect]
     Active Substance: MIRVETUXIMAB SORAVTANSINE-GYNX
     Indication: Fallopian tube neoplasm
     Route: 042
     Dates: start: 20250114

REACTIONS (3)
  - Ovarian cancer [Fatal]
  - Subdural haematoma [Not Recovered/Not Resolved]
  - Paraneoplastic thrombosis [Not Recovered/Not Resolved]

NARRATIVE: CASE EVENT DATE: 20250101
